FAERS Safety Report 19372411 (Version 1)
Quarter: 2021Q2

REPORT INFORMATION
  Report Type: Spontaneous
  Country: CN (occurrence: CN)
  Receive Date: 20210604
  Receipt Date: 20210604
  Transmission Date: 20210717
  Serious: Yes (Other)
  Sender: FDA-Public Use
  Company Number: CN-PFIZER INC-2021474463

PATIENT
  Age: 3 Year
  Sex: Male

DRUGS (16)
  1. CISPLATIN. [Suspect]
     Active Substance: CISPLATIN
     Indication: T-CELL LYMPHOMA
     Dosage: 33 MG/M2, CYCLIC (DAYS 1?3; 1 CYCLE)
  2. IFOSFAMIDE. [Suspect]
     Active Substance: IFOSFAMIDE
     Indication: T-CELL LYMPHOMA
     Dosage: UNK, CYCLIC (1.5 G/M2 DAYS 2?5, 2 CYCLES)
  3. ETOPOSIDE. [Suspect]
     Active Substance: ETOPOSIDE
     Indication: EPSTEIN-BARR VIRUS INFECTION
     Dosage: 100 MG/M2, CYCLIC (DAYS 2?3; 1 CYCLE)
  4. DEXAMETHASONE. [Suspect]
     Active Substance: DEXAMETHASONE
     Indication: EPSTEIN-BARR VIRUS INFECTION
     Dosage: 5 MG, WEEKLY
     Route: 037
  5. PEGASPARGASE [Suspect]
     Active Substance: PEGASPARGASE
     Indication: T-CELL LYMPHOMA
     Dosage: UNK UNK, CYCLIC (2500 IU/M2, DAY 1)
  6. ETOPOSIDE. [Suspect]
     Active Substance: ETOPOSIDE
     Indication: T-CELL LYMPHOMA
     Dosage: 75 MG/M2, DAYS 2?5, 2 CYCLES
  7. METHYLPREDNISOLONE. [Suspect]
     Active Substance: METHYLPREDNISOLONE
     Indication: EPSTEIN-BARR VIRUS INFECTION
  8. IFOSFAMIDE. [Suspect]
     Active Substance: IFOSFAMIDE
     Indication: EPSTEIN-BARR VIRUS INFECTION
     Dosage: UNK, CYCLIC (1.2 G/M2 DAYS 1?3; 1 CYCLE)
  9. METHYLPREDNISOLONE. [Suspect]
     Active Substance: METHYLPREDNISOLONE
     Indication: T-CELL LYMPHOMA
     Dosage: 40?60 MG/M2, CYCLIC (DAYS 1?5; 2 CYCLES)
  10. METHOTREXATE. [Suspect]
     Active Substance: METHOTREXATE
     Indication: T-CELL LYMPHOMA
     Dosage: UNK, CYCLIC (2 G/M2 DAY 1; 2 CYCLES)
  11. CYTARABINE. [Suspect]
     Active Substance: CYTARABINE
     Indication: EPSTEIN-BARR VIRUS INFECTION
  12. CISPLATIN. [Suspect]
     Active Substance: CISPLATIN
     Indication: EPSTEIN-BARR VIRUS INFECTION
  13. METHOTREXATE. [Suspect]
     Active Substance: METHOTREXATE
     Indication: EPSTEIN-BARR VIRUS INFECTION
     Dosage: 10 MG, WEEKLY
     Route: 037
  14. PEGASPARGASE [Suspect]
     Active Substance: PEGASPARGASE
     Indication: EPSTEIN-BARR VIRUS INFECTION
  15. CYTARABINE. [Suspect]
     Active Substance: CYTARABINE
     Indication: T-CELL LYMPHOMA
     Dosage: 25 MG, WEEKLY
     Route: 037
  16. DEXAMETHASONE. [Suspect]
     Active Substance: DEXAMETHASONE
     Indication: T-CELL LYMPHOMA
     Dosage: 15 MG/M2, CYCLIC (DAYS 1?4; 1 CYCLE)

REACTIONS (9)
  - Cardiomyopathy [Unknown]
  - Hypofibrinogenaemia [Unknown]
  - Diarrhoea [Unknown]
  - Pneumonia [Unknown]
  - Myelosuppression [Unknown]
  - Product use in unapproved indication [Unknown]
  - Febrile neutropenia [Unknown]
  - Liver injury [Unknown]
  - Stomatitis [Unknown]
